FAERS Safety Report 5396630-3 (Version None)
Quarter: 2007Q3

REPORT INFORMATION
  Report Type: 
  Country: None (occurrence: None)
  Receive Date: 20070725
  Receipt Date: 20070717
  Transmission Date: 20080115
  Serious: Yes (Death)
  Sender: FDA-Public Use
  Company Number: A0651243A

PATIENT
  Age: 34 Year
  Sex: Female

DRUGS (9)
  1. LAMICTAL [Suspect]
     Indication: BIPOLAR DISORDER
     Dosage: 100MG VARIABLE DOSE
     Route: 048
     Dates: start: 20060301
  2. INSULIN [Suspect]
  3. CYMBALTA [Concomitant]
     Indication: BIPOLAR DISORDER
     Dosage: 90MG PER DAY
     Route: 048
     Dates: start: 20060101
  4. SEROQUEL [Concomitant]
     Indication: BIPOLAR DISORDER
     Dosage: 300MG AT NIGHT
     Dates: start: 20040201
  5. LORAZEPAM [Concomitant]
     Indication: BIPOLAR DISORDER
  6. UNSPECIFIED MEDICATION [Concomitant]
  7. LISINOPRIL [Concomitant]
  8. HUMALOG [Concomitant]
     Dosage: 10UNIT TWICE PER DAY
     Route: 058
  9. BYETTA [Concomitant]
     Dosage: 10UNIT TWICE PER DAY

REACTIONS (2)
  - COMPLETED SUICIDE [None]
  - INTENTIONAL OVERDOSE [None]
